FAERS Safety Report 23713556 (Version 2)
Quarter: 2024Q2

REPORT INFORMATION
  Report Type: Report from Study
  Country: FR (occurrence: FR)
  Receive Date: 20240405
  Receipt Date: 20240617
  Transmission Date: 20240716
  Serious: Yes (Hospitalization)
  Sender: FDA-Public Use
  Company Number: FR-Eisai-EC-2024-160702

PATIENT
  Age: 64 Year
  Sex: Male
  Weight: 82.0 kg

DRUGS (12)
  1. LENVATINIB MESYLATE [Suspect]
     Active Substance: LENVATINIB MESYLATE
     Indication: Uveal melanoma
     Route: 048
     Dates: start: 20221024, end: 20230131
  2. PEMBROLIZUMAB [Suspect]
     Active Substance: PEMBROLIZUMAB
     Indication: Uveal melanoma
     Dates: start: 20221024, end: 20231227
  3. LAMALINE [Concomitant]
  4. LIDOCAINE [Concomitant]
     Active Substance: LIDOCAINE
  5. ESOMEPRAZOLE [Concomitant]
     Active Substance: ESOMEPRAZOLE
  6. PREDNISONE [Concomitant]
     Active Substance: PREDNISONE
     Dates: start: 20230209
  7. TOCILIZUMAB [Concomitant]
     Active Substance: TOCILIZUMAB
     Dates: start: 202403
  8. SKENAN [Concomitant]
     Active Substance: MORPHINE SULFATE
     Dates: start: 2024
  9. MORPHINE SULFATE [Concomitant]
     Active Substance: MORPHINE SULFATE
     Dates: start: 2024
  10. AMITRIPTYLINE HYDROCHLORIDE [Concomitant]
     Active Substance: AMITRIPTYLINE HYDROCHLORIDE
     Dates: start: 20240208
  11. NEURONTIN [Concomitant]
     Active Substance: GABAPENTIN
     Dates: start: 2024
  12. NITROGLYCERIN [Concomitant]
     Active Substance: NITROGLYCERIN

REACTIONS (2)
  - Arthritis [Recovered/Resolved with Sequelae]
  - Sepsis [Recovering/Resolving]

NARRATIVE: CASE EVENT DATE: 20240223
